FAERS Safety Report 4537686-7 (Version None)
Quarter: 2005Q1

REPORT INFORMATION
  Report Type: 
  Country: None (occurrence: None)
  Receive Date: 20041216
  Receipt Date: 20040513
  Transmission Date: 20050727
  Serious: Yes (Death)
  Sender: FDA-Public Use
  Company Number: HQWYE892814MAY04

PATIENT
  Age: 16 Year
  Sex: Female
  Weight: 65.83 kg

DRUGS (2)
  1. EFFEXOR XR [Suspect]
     Indication: MAJOR DEPRESSION
     Dosage: 150 MG 1X PER 1 DAY, ORAL
     Route: 048
     Dates: start: 20040317, end: 20040506
  2. LIPITOR [Concomitant]

REACTIONS (1)
  - COMPLETED SUICIDE [None]
